FAERS Safety Report 18031849 (Version 1)
Quarter: 2020Q3

REPORT INFORMATION
  Report Type: Spontaneous
  Country: US (occurrence: US)
  Receive Date: 20200716
  Receipt Date: 20200716
  Transmission Date: 20201103
  Serious: No
  Sender: FDA-Public Use
  Company Number: US-009507513-2007USA004359

PATIENT
  Age: 42 Year

DRUGS (3)
  1. GANIRELIX ACETATE INJECTION [Suspect]
     Active Substance: GANIRELIX ACETATE
     Dosage: 1 SHOT, QD (1 SHOT DAILY), STRENGTH: 250 MICROGRAM (MCG)/0.5 MILLILITER (ML)
     Dates: start: 20200708
  2. GANIRELIX ACETATE INJECTION [Suspect]
     Active Substance: GANIRELIX ACETATE
     Dosage: UNK, INJECTED THE DOSE INTO THIGH AREA
     Dates: start: 202007
  3. GANIRELIX ACETATE INJECTION [Suspect]
     Active Substance: GANIRELIX ACETATE
     Dosage: 1 SHOT, QD (1 SHOT DAILY), STRENGTH: 250 MICROGRAM (MCG)/0.5 MILLILITER (ML), HAS HAD 8 INJECTIONS

REACTIONS (5)
  - Device difficult to use [Unknown]
  - Product quality issue [Unknown]
  - Needle issue [Unknown]
  - Wrong technique in device usage process [Unknown]
  - No adverse event [Unknown]

NARRATIVE: CASE EVENT DATE: 20200708
